FAERS Safety Report 24367713 (Version 1)
Quarter: 2024Q3

REPORT INFORMATION
  Report Type: Spontaneous
  Country: US (occurrence: None)
  Receive Date: 20240926
  Receipt Date: 20240926
  Transmission Date: 20241016
  Serious: Yes (Death, Hospitalization)
  Sender: Public
  Company Number: None

PATIENT
  Age: 72 Year
  Sex: Male
  Weight: 77 kg

DRUGS (1)
  1. TECLISTAMAB [Suspect]
     Active Substance: TECLISTAMAB
     Dates: start: 20240826, end: 20240901

REACTIONS (3)
  - Pyrexia [None]
  - Immune effector cell-associated neurotoxicity syndrome [None]
  - West Nile virus test positive [None]

NARRATIVE: CASE EVENT DATE: 20240904
